FAERS Safety Report 20801457 (Version 2)
Quarter: 2022Q3

REPORT INFORMATION
  Report Type: Spontaneous
  Country: US (occurrence: US)
  Receive Date: 20220509
  Receipt Date: 20220708
  Transmission Date: 20221026
  Serious: No
  Sender: FDA-Public Use
  Company Number: US-BRISTOL-MYERS SQUIBB COMPANY-2022-029515

PATIENT
  Age: 78 Year
  Sex: Male
  Weight: 102 kg

DRUGS (1)
  1. ELIQUIS [Suspect]
     Active Substance: APIXABAN
     Indication: Thrombosis
     Dosage: EXPIRY DATE: SEP-2023  FOR ELIQUIS FROM THE US
     Route: 048

REACTIONS (7)
  - Physical product label issue [Unknown]
  - Visual impairment [Unknown]
  - Memory impairment [Unknown]
  - Prescription drug used without a prescription [Unknown]
  - Product counterfeit [Unknown]
  - Counterfeit product administered [Unknown]
  - Product colour issue [Unknown]
